FAERS Safety Report 11619204 (Version 2)
Quarter: 2016Q3

REPORT INFORMATION
  Report Type: Spontaneous
  Country: US (occurrence: US)
  Receive Date: 20151012
  Receipt Date: 20160906
  Transmission Date: 20161109
  Serious: No
  Sender: FDA-Public Use
  Company Number: US-BAYER-2015-436217

PATIENT
  Age: 36 Year
  Sex: Male
  Weight: 79.37 kg

DRUGS (41)
  1. CIPRO [Suspect]
     Active Substance: CIPROFLOXACIN HYDROCHLORIDE
     Dosage: UNK
     Dates: start: 20070725
  2. CIPRO [Suspect]
     Active Substance: CIPROFLOXACIN HYDROCHLORIDE
     Dosage: UNK
     Dates: start: 20140509
  3. AVELOX [Suspect]
     Active Substance: MOXIFLOXACIN HYDROCHLORIDE
     Dosage: 400 MG, UNK
     Dates: start: 20060913
  4. AVELOX [Suspect]
     Active Substance: MOXIFLOXACIN HYDROCHLORIDE
     Dosage: 400 MG, UNK
     Dates: start: 200609
  5. LEVAQUIN [Suspect]
     Active Substance: LEVOFLOXACIN
     Dosage: 500 MG, UNK
     Dates: start: 20050111
  6. WELLBUTRIN [Concomitant]
     Active Substance: BUPROPION HYDROCHLORIDE
     Indication: SEASONAL AFFECTIVE DISORDER
     Dosage: UNK
     Dates: start: 2008, end: 2010
  7. CIPRO [Suspect]
     Active Substance: CIPROFLOXACIN HYDROCHLORIDE
     Dosage: UNK
     Dates: start: 20060721
  8. CIPRO [Suspect]
     Active Substance: CIPROFLOXACIN HYDROCHLORIDE
     Dosage: UNK
     Dates: start: 20120919
  9. AVELOX [Suspect]
     Active Substance: MOXIFLOXACIN HYDROCHLORIDE
     Dosage: 400 MG, UNK
     Dates: start: 20060403
  10. CLOZAPINE. [Concomitant]
     Active Substance: CLOZAPINE
  11. FLEXERIL [Concomitant]
     Active Substance: CYCLOBENZAPRINE HYDROCHLORIDE
     Indication: SLEEP DISORDER
     Dosage: 20 MG, HS
     Dates: start: 2008, end: 2016
  12. SINGULAIR [Concomitant]
     Active Substance: MONTELUKAST SODIUM
     Indication: MULTIPLE ALLERGIES
     Dosage: 10 MG, QD
  13. LEVAQUIN [Suspect]
     Active Substance: LEVOFLOXACIN
     Dosage: 500 MG, UNK
     Dates: start: 20050216
  14. THEOPHYLLINE [Concomitant]
     Active Substance: THEOPHYLLINE ANHYDROUS
  15. DULOXETINE. [Concomitant]
     Active Substance: DULOXETINE
  16. METOCLOPRAMIDE. [Concomitant]
     Active Substance: METOCLOPRAMIDE
  17. CIPRO [Suspect]
     Active Substance: CIPROFLOXACIN HYDROCHLORIDE
     Dosage: UNK
     Dates: start: 20110509
  18. CIPRO [Suspect]
     Active Substance: CIPROFLOXACIN HYDROCHLORIDE
     Dosage: UNK
     Dates: start: 20110621
  19. AVELOX [Suspect]
     Active Substance: MOXIFLOXACIN HYDROCHLORIDE
     Dosage: UNK
     Dates: start: 20061227
  20. WARFARIN [Concomitant]
     Active Substance: WARFARIN
  21. ROPINIROLE. [Concomitant]
     Active Substance: ROPINIROLE
  22. CIPRO [Suspect]
     Active Substance: CIPROFLOXACIN HYDROCHLORIDE
     Dosage: UNK
     Dates: start: 20100119
  23. LEVAQUIN [Suspect]
     Active Substance: LEVOFLOXACIN
     Dosage: 500 MG, UNK
     Dates: start: 20051102
  24. METHOTREXATE. [Concomitant]
     Active Substance: METHOTREXATE
  25. VALIUM [Concomitant]
     Active Substance: DIAZEPAM
     Indication: FIBROMYALGIA
     Dosage: UNK
     Dates: start: 2008, end: 2016
  26. CIPRO [Suspect]
     Active Substance: CIPROFLOXACIN HYDROCHLORIDE
     Dosage: UNK
     Dates: start: 20110727
  27. LEVAQUIN [Suspect]
     Active Substance: LEVOFLOXACIN
     Dosage: 500 MG, UNK
     Route: 048
     Dates: start: 200501, end: 200511
  28. FLEXERIL [Concomitant]
     Active Substance: CYCLOBENZAPRINE HYDROCHLORIDE
     Indication: FIBROMYALGIA
  29. ULTRAM [Concomitant]
     Active Substance: TRAMADOL HYDROCHLORIDE
     Dosage: UNK
  30. CIPRO [Suspect]
     Active Substance: CIPROFLOXACIN HYDROCHLORIDE
     Dosage: UNK
     Dates: start: 20120507
  31. CIPRO [Suspect]
     Active Substance: CIPROFLOXACIN HYDROCHLORIDE
     Dosage: UNK
     Dates: start: 20140804, end: 201408
  32. OMEPRAZOLE. [Concomitant]
     Active Substance: OMEPRAZOLE
  33. CYCLOSPORINE. [Concomitant]
     Active Substance: CYCLOSPORINE
  34. CIPRO [Suspect]
     Active Substance: CIPROFLOXACIN HYDROCHLORIDE
     Dosage: UNK
     Dates: start: 20060928
  35. CIPRO [Suspect]
     Active Substance: CIPROFLOXACIN HYDROCHLORIDE
     Dosage: UNK
     Dates: start: 20100804
  36. CIPRO [Suspect]
     Active Substance: CIPROFLOXACIN HYDROCHLORIDE
     Dosage: UNK
     Dates: start: 20120720
  37. CIPRO [Suspect]
     Active Substance: CIPROFLOXACIN HYDROCHLORIDE
     Dosage: UNK
     Dates: start: 20140414
  38. TIZANIDINE. [Concomitant]
     Active Substance: TIZANIDINE
  39. GLIBENCLAMIDE [Concomitant]
     Active Substance: GLYBURIDE
  40. FLEXERIL [Concomitant]
     Active Substance: CYCLOBENZAPRINE HYDROCHLORIDE
     Indication: HYPOTONIA
  41. ZOLOFT [Concomitant]
     Active Substance: SERTRALINE HYDROCHLORIDE
     Indication: SEASONAL AFFECTIVE DISORDER
     Dosage: UNK
     Dates: start: 2000, end: 2008

REACTIONS (6)
  - Hypoaesthesia [None]
  - Injury [None]
  - Pain [None]
  - Pain in extremity [None]
  - Emotional distress [None]
  - Neuropathy peripheral [None]

NARRATIVE: CASE EVENT DATE: 200511
